FAERS Safety Report 15171353 (Version 1)
Quarter: 2018Q3

REPORT INFORMATION
  Report Type: Spontaneous
  Country: FR (occurrence: FR)
  Receive Date: 20180720
  Receipt Date: 20180720
  Transmission Date: 20181010
  Serious: Yes (Hospitalization, Other)
  Sender: FDA-Public Use
  Company Number: FR-BRISTOL-MYERS SQUIBB COMPANY-BMS-2017-020490

PATIENT
  Sex: Female
  Weight: 47 kg

DRUGS (3)
  1. OPDIVO [Suspect]
     Active Substance: NIVOLUMAB
     Indication: HODGKIN^S DISEASE RECURRENT
     Dosage: 3 MG/KG, Q2WK
     Route: 042
     Dates: start: 20160525, end: 20171018
  2. OPDIVO [Suspect]
     Active Substance: NIVOLUMAB
     Indication: PRODUCT USED FOR UNKNOWN INDICATION
     Dosage: UNK
     Route: 065
     Dates: start: 20180613
  3. BISOPROLOL [Concomitant]
     Active Substance: BISOPROLOL
     Indication: PRODUCT USED FOR UNKNOWN INDICATION
     Dosage: 5 MG, UNK
     Route: 065

REACTIONS (8)
  - Radiation pericarditis [Unknown]
  - Mucosal dryness [Unknown]
  - Decreased appetite [Unknown]
  - Pulmonary hypertension [Unknown]
  - Asthenia [Unknown]
  - Product use in unapproved indication [Unknown]
  - Right ventricular dysfunction [Unknown]
  - Pyrexia [Unknown]
